FAERS Safety Report 15726123 (Version 1)
Quarter: 2018Q4

REPORT INFORMATION
  Report Type: Spontaneous
  Country: US (occurrence: US)
  Receive Date: 20181216
  Receipt Date: 20181216
  Transmission Date: 20190205
  Serious: Yes (Other)
  Sender: FDA-Public Use
  Company Number: US-SUPERNUS PHARMACEUTICALS, INC.-2017SUP00310

PATIENT
  Age: 74 Year
  Sex: Female
  Weight: 69.84 kg

DRUGS (11)
  1. TROKENDI XR [Suspect]
     Active Substance: TOPIRAMATE
     Indication: MIGRAINE
     Dosage: 50 MG, 1X/DAY
     Route: 048
     Dates: start: 201710
  2. SINGULAIR [Concomitant]
     Active Substance: MONTELUKAST SODIUM
     Dosage: 10 MG, 1X/DAY
  3. BABY ASPIRIN [Concomitant]
     Active Substance: ASPIRIN
     Dosage: UNK, 1X/DAY
  4. NITROSTAT [Concomitant]
     Active Substance: NITROGLYCERIN
     Dosage: UNK, AS NEEDED
  5. TROKENDI XR [Suspect]
     Active Substance: TOPIRAMATE
     Indication: MIGRAINE
     Dosage: 25 MG, 1X/DAY
     Route: 048
     Dates: start: 201710, end: 2017
  6. IMDUR [Concomitant]
     Active Substance: ISOSORBIDE MONONITRATE
     Dosage: 30 MG, 1X/DAY
  7. DONEPEZIL. [Concomitant]
     Active Substance: DONEPEZIL
     Dosage: 5 MG, 1X/DAY
  8. AMITIZA GEL CAPS [Concomitant]
     Dosage: 8 MG, 1X/DAY
  9. TOPIRAMATE. [Suspect]
     Active Substance: TOPIRAMATE
     Indication: MIGRAINE
     Dosage: 200 MG, 2X/DAY
     Dates: start: 2017, end: 2017
  10. LEVOTHYROXINE. [Concomitant]
     Active Substance: LEVOTHYROXINE
     Dosage: 75 UNK, 1X/DAY
  11. ^SULFONEX BREATHING TREATMENTS^ [Concomitant]

REACTIONS (3)
  - Drug ineffective [Unknown]
  - Migraine [Not Recovered/Not Resolved]
  - Memory impairment [Not Recovered/Not Resolved]
